FAERS Safety Report 8806721 (Version 3)
Quarter: 2013Q1

REPORT INFORMATION
  Report Type: Spontaneous
  Country: None (occurrence: None)
  Receive Date: 20120919
  Receipt Date: 20121005
  Transmission Date: 20140127
  Serious: Yes (Disabling, Other)
  Sender: FDA-Public Use
  Company Number: AUR-APL-2012-03975

PATIENT
  Sex: Female
  Weight: 70 kg

DRUGS (1)
  1. PAROXETINE [Suspect]
     Indication: DEPRESSION
     Dosage: 60, 40, 20, 10, 0 UNKNOWN
     Route: 048

REACTIONS (15)
  - Vision blurred [None]
  - Diarrhoea [None]
  - Gait disturbance [None]
  - Dizziness [None]
  - Paraesthesia [None]
  - Faecal incontinence [None]
  - Memory impairment [None]
  - Withdrawal syndrome [None]
  - Headache [None]
  - Dyspepsia [None]
  - Irritability [None]
  - Nausea [None]
  - Tearfulness [None]
  - Pain in extremity [None]
  - Shock [None]
